FAERS Safety Report 11101225 (Version 6)
Quarter: 2023Q4

REPORT INFORMATION
  Report Type: Report from Study
  Country: US (occurrence: US)
  Receive Date: 20150508
  Receipt Date: 20231121
  Transmission Date: 20240109
  Serious: Yes (Other)
  Sender: FDA-Public Use
  Company Number: US-SHIRE-US201503872

PATIENT
  Sex: Female
  Weight: 77 kg

DRUGS (20)
  1. LANADELUMAB [Suspect]
     Active Substance: LANADELUMAB
     Indication: Immune system disorder
     Dosage: 300 MILLIGRAM, Q2WEEKS
     Route: 058
     Dates: start: 202308
  2. CINRYZE [Suspect]
     Active Substance: HUMAN C1-ESTERASE INHIBITOR
     Indication: Hereditary angioedema
     Dosage: 1000 INTERNATIONAL UNIT
     Route: 042
     Dates: start: 20141106, end: 20150511
  3. CINRYZE [Suspect]
     Active Substance: HUMAN C1-ESTERASE INHIBITOR
     Indication: Hereditary angioedema
     Dosage: 1000 INTERNATIONAL UNIT
     Route: 042
     Dates: start: 20141106, end: 20150511
  4. CINRYZE [Suspect]
     Active Substance: HUMAN C1-ESTERASE INHIBITOR
     Indication: Hereditary angioedema
     Dosage: 1000 INTERNATIONAL UNIT
     Route: 042
     Dates: start: 20141106, end: 20150511
  5. CINRYZE [Suspect]
     Active Substance: HUMAN C1-ESTERASE INHIBITOR
     Indication: Prophylaxis
     Dosage: UNK
     Route: 042
     Dates: start: 201409
  6. CINRYZE [Suspect]
     Active Substance: HUMAN C1-ESTERASE INHIBITOR
     Indication: Prophylaxis
     Dosage: UNK
     Route: 042
     Dates: start: 201409
  7. CINRYZE [Suspect]
     Active Substance: HUMAN C1-ESTERASE INHIBITOR
     Indication: Prophylaxis
     Dosage: UNK
     Route: 042
     Dates: start: 201409
  8. KALBITOR [Suspect]
     Active Substance: ECALLANTIDE
     Indication: Hereditary angioedema
     Dosage: 30 MILLIGRAM
     Route: 058
  9. BERINERT [Suspect]
     Active Substance: HUMAN C1-ESTERASE INHIBITOR
     Indication: Product used for unknown indication
     Dosage: UNK
     Route: 065
     Dates: end: 2015
  10. ZYRTEC [Concomitant]
     Active Substance: CETIRIZINE HYDROCHLORIDE
     Indication: Product used for unknown indication
     Dosage: UNK
     Route: 065
  11. VITAMIN B12 [Concomitant]
     Active Substance: CYANOCOBALAMIN
     Indication: Product used for unknown indication
     Dosage: UNK
     Route: 065
  12. PREVACID [Concomitant]
     Active Substance: LANSOPRAZOLE
     Indication: Product used for unknown indication
     Dosage: UNK
     Route: 065
  13. SAVELLA [Concomitant]
     Active Substance: MILNACIPRAN HYDROCHLORIDE
     Indication: Product used for unknown indication
     Dosage: UNK
     Route: 065
  14. ZOFRAN [Concomitant]
     Active Substance: ONDANSETRON HYDROCHLORIDE
     Indication: Product used for unknown indication
     Dosage: UNK
     Route: 065
  15. SPIRONOLACTONE [Concomitant]
     Active Substance: SPIRONOLACTONE
     Indication: Product used for unknown indication
     Dosage: UNK
     Route: 065
  16. COUMADIN [Concomitant]
     Active Substance: WARFARIN SODIUM
     Indication: Jugular vein thrombosis
     Dosage: 5 MILLIGRAM, QD
     Route: 065
     Dates: start: 2015
  17. COUMADIN [Concomitant]
     Active Substance: WARFARIN SODIUM
     Indication: Subclavian vein thrombosis
  18. LOVENOX [Concomitant]
     Active Substance: ENOXAPARIN SODIUM
     Indication: Jugular vein thrombosis
     Dosage: UNK
     Route: 065
     Dates: start: 2015
  19. LOVENOX [Concomitant]
     Active Substance: ENOXAPARIN SODIUM
     Indication: Subclavian vein thrombosis
  20. RUCONEST [Concomitant]
     Active Substance: HUMAN C1-ESTERASE INHIBITOR
     Dosage: UNK
     Route: 065

REACTIONS (9)
  - Device dislocation [Recovered/Resolved]
  - Jugular vein thrombosis [Not Recovered/Not Resolved]
  - Subclavian vein thrombosis [Not Recovered/Not Resolved]
  - Axillary vein thrombosis [Unknown]
  - Device related thrombosis [Unknown]
  - Weight increased [Unknown]
  - Hereditary angioedema [Recovered/Resolved]
  - Product use in unapproved indication [Unknown]
  - Product use complaint [Unknown]

NARRATIVE: CASE EVENT DATE: 20150101
